FAERS Safety Report 4999543-1 (Version None)
Quarter: 2006Q2

REPORT INFORMATION
  Report Type: 
  Country: None (occurrence: None)
  Receive Date: 20060511
  Receipt Date: 20060106
  Transmission Date: 20061013
  Serious: Yes (Hospitalization)
  Sender: FDA-Public Use
  Company Number: US-MERCK-0601USA00901

PATIENT
  Age: 66 Year
  Sex: Male
  Weight: 89 kg

DRUGS (9)
  1. VIOXX [Suspect]
     Indication: OSTEOARTHRITIS
     Route: 048
     Dates: start: 20010501, end: 20040901
  2. ASPIRIN [Concomitant]
     Route: 065
  3. MEVACOR [Concomitant]
     Route: 065
  4. DIOVAN [Concomitant]
     Route: 065
  5. LOPRESSOR [Concomitant]
     Route: 065
  6. ACETAZOLAMIDE [Concomitant]
     Route: 065
  7. OCUVITE [Concomitant]
     Route: 065
  8. GLYBURIDE [Concomitant]
     Route: 065
  9. GLUCOPHAGE [Concomitant]
     Route: 065

REACTIONS (9)
  - ADVERSE EVENT [None]
  - ANGINA UNSTABLE [None]
  - ARTERIOSCLEROSIS [None]
  - ARTERIOSCLEROSIS CORONARY ARTERY [None]
  - ATRIAL FIBRILLATION [None]
  - CORONARY ARTERY DISEASE [None]
  - HYPERLIPIDAEMIA [None]
  - LENS DISORDER [None]
  - PLEURAL EFFUSION [None]
